FAERS Safety Report 10244695 (Version 3)
Quarter: 2014Q3

REPORT INFORMATION
  Report Type: Spontaneous
  Country: US (occurrence: None)
  Receive Date: 20140617
  Receipt Date: 20140811
  Transmission Date: 20150326
  Serious: Yes (Hospitalization)
  Sender: FDA-Public Use
  Company Number: 2014CT000029

PATIENT
  Age: 58 Year
  Sex: Female
  Weight: 112.95 kg

DRUGS (9)
  1. KORLYM [Suspect]
     Active Substance: MIFEPRISTONE
     Indication: CUSHING^S SYNDROME
     Route: 048
     Dates: start: 20140304, end: 20140304
  2. ZETIA [Concomitant]
     Active Substance: EZETIMIBE
  3. METFORMIN [Concomitant]
     Active Substance: METFORMIN HYDROCHLORIDE
  4. VERAPAMIL [Concomitant]
     Active Substance: VERAPAMIL HYDROCHLORIDE
  5. FUROSEMIDE. [Concomitant]
     Active Substance: FUROSEMIDE
  6. LEVOTHYROXINE [Concomitant]
     Active Substance: LEVOTHYROXINE
  7. ZOLOFT [Concomitant]
     Active Substance: SERTRALINE HYDROCHLORIDE
  8. LIPITOR [Concomitant]
     Active Substance: ATORVASTATIN CALCIUM
  9. DYAZIDE [Concomitant]
     Active Substance: HYDROCHLOROTHIAZIDE\TRIAMTERENE

REACTIONS (22)
  - Gout [None]
  - Joint swelling [None]
  - Apparent life threatening event [None]
  - White blood cell count increased [None]
  - Muscular weakness [None]
  - Family stress [None]
  - Malaise [None]
  - Weight decreased [None]
  - Fatigue [None]
  - Fall [None]
  - Constipation [None]
  - Influenza like illness [None]
  - Pyrexia [None]
  - Asthenia [None]
  - Dry mouth [None]
  - Lung disorder [None]
  - Blood uric acid increased [None]
  - Oedema peripheral [None]
  - Muscle spasms [None]
  - Condition aggravated [None]
  - Dyspnoea [None]
  - Oxygen saturation decreased [None]

NARRATIVE: CASE EVENT DATE: 201403
